FAERS Safety Report 24831814 (Version 1)
Quarter: 2025Q1

REPORT INFORMATION
  Report Type: Spontaneous
  Country: CN (occurrence: CN)
  Receive Date: 20250110
  Receipt Date: 20250110
  Transmission Date: 20250409
  Serious: Yes (Hospitalization)
  Sender: PURDUE
  Company Number: CN-NAPPMUNDI-GBR-2025-0122559

PATIENT
  Age: 59 Year
  Sex: Male
  Weight: 70 kg

DRUGS (2)
  1. OXYCONTIN [Suspect]
     Active Substance: OXYCODONE HYDROCHLORIDE
     Indication: Gastric cancer
     Dosage: 1 TABLET, DAILY ONCE (10MG)
     Route: 048
     Dates: start: 20241104, end: 20241104
  2. TRAMADOL HYDROCHLORIDE [Suspect]
     Active Substance: TRAMADOL HYDROCHLORIDE
     Indication: Gastric cancer
     Dosage: 50 MILLIGRAM, DAILY ONCE
     Route: 041
     Dates: start: 20241104

REACTIONS (5)
  - Epilepsy [Unknown]
  - Syncope [Unknown]
  - Nausea [Unknown]
  - Vomiting [Unknown]
  - Inadequate analgesia [Unknown]

NARRATIVE: CASE EVENT DATE: 20241104
